FAERS Safety Report 6374729-2 (Version None)
Quarter: 2009Q3

REPORT INFORMATION
  Report Type: 
  Country: None (occurrence: None)
  Receive Date: 20090924
  Receipt Date: 20090918
  Transmission Date: 20100115
  Serious: Yes (Hospitalization)
  Sender: FDA-Public Use
  Company Number: GB-BRISTOL-MYERS SQUIBB COMPANY-14786511

PATIENT
  Age: 6 Decade
  Sex: Female

DRUGS (2)
  1. ABILIFY [Suspect]
     Dosage: INITIAL DOSE:5MG ONCE DAILY AND THEN INCREASED TO 20MG
     Dates: start: 20090101
  2. BENZODIAZEPINE [Suspect]

REACTIONS (4)
  - CONFUSIONAL STATE [None]
  - FAECAL INCONTINENCE [None]
  - FALL [None]
  - URINARY INCONTINENCE [None]
